FAERS Safety Report 5997295-X (Version None)
Quarter: 2008Q4

REPORT INFORMATION
  Report Type: 
  Country: None (occurrence: None)
  Receive Date: 20081204
  Receipt Date: 20081124
  Transmission Date: 20090506
  Serious: Yes (Disabling)
  Sender: FDA-Public Use
  Company Number: WAES 0801USA00431

PATIENT
  Age: 54 Year
  Sex: Female
  Weight: 45.8133 kg

DRUGS (13)
  1. VORINOSTAT [Suspect]
     Indication: MYELODYSPLASTIC SYNDROME
     Dosage: 200 MG/TID/PO
     Route: 048
     Dates: start: 20071106, end: 20071112
  2. VORINOSTAT [Suspect]
     Indication: MYELODYSPLASTIC SYNDROME
     Dosage: 200 MG/TID/PO
     Route: 048
     Dates: start: 20071115, end: 20071119
  3. VORINOSTAT [Suspect]
     Indication: MYELODYSPLASTIC SYNDROME
     Dosage: 200 MG/TID/PO
     Route: 048
     Dates: start: 20071204, end: 20071217
  4. VORINOSTAT [Suspect]
     Indication: MYELODYSPLASTIC SYNDROME
     Dosage: 200 MG/TID/PO
     Route: 048
     Dates: start: 20071225, end: 20071231
  5. BENADRYL [Concomitant]
  6. COMPAZINE [Concomitant]
  7. ACETAMINOPHEN [Concomitant]
  8. CEPHALEXIN [Concomitant]
  9. MAGNESIA (MILK OF) [Concomitant]
  10. NYSTATIN [Concomitant]
  11. ONDANSETRON [Concomitant]
  12. OXYCODONE [Concomitant]
  13. VALACYCLOVIR HYDROCHLORIDE [Concomitant]

REACTIONS (3)
  - FALL [None]
  - HAEMOGLOBIN DECREASED [None]
  - NEUROPATHY PERIPHERAL [None]
